FAERS Safety Report 19460124 (Version 2)
Quarter: 2021Q2

REPORT INFORMATION
  Report Type: Spontaneous
  Country: US (occurrence: CN)
  Receive Date: 20210625
  Receipt Date: 20210629
  Transmission Date: 20210717
  Serious: Yes (Other)
  Sender: FDA-Public Use
  Company Number: CN-SA-2021SA201652

PATIENT
  Age: 3 Year
  Sex: Female

DRUGS (3)
  1. ALEMTUZUMAB [Suspect]
     Active Substance: ALEMTUZUMAB
     Indication: IMMUNOSUPPRESSANT DRUG THERAPY
     Dosage: 1 MG/KG
  2. RITUXIMAB. [Suspect]
     Active Substance: RITUXIMAB
     Indication: EPSTEIN-BARR VIRAEMIA
  3. RITUXIMAB. [Suspect]
     Active Substance: RITUXIMAB
     Indication: CYTOMEGALOVIRUS VIRAEMIA

REACTIONS (9)
  - Epstein-Barr viraemia [Unknown]
  - Enterocolitis viral [Recovered/Resolved]
  - Adenovirus infection [Recovered/Resolved]
  - Legionella infection [Unknown]
  - Diarrhoea [Recovered/Resolved]
  - Pulmonary necrosis [Unknown]
  - Pulmonary mass [Unknown]
  - Cytomegalovirus viraemia [Unknown]
  - Nausea [Recovered/Resolved]
